FAERS Safety Report 5786619-4 (Version None)
Quarter: 2008Q2

REPORT INFORMATION
  Report Type: 
  Country: None (occurrence: None)
  Receive Date: 20080624
  Receipt Date: 20080609
  Transmission Date: 20081010
  Serious: Yes (Other)
  Sender: FDA-Public Use
  Company Number: FR-GENENTECH-262794

PATIENT
  Age: 66 Year
  Sex: Female

DRUGS (6)
  1. HERCEPTIN [Suspect]
     Indication: BREAST CANCER
     Dosage: UNK, UNK
     Route: 042
     Dates: start: 20061031, end: 20070405
  2. FEMARA [Suspect]
     Indication: NEOPLASM MALIGNANT
     Route: 048
     Dates: start: 20070901
  3. TAXOTERE [Suspect]
     Indication: BREAST CANCER
     Dosage: 100 MG/M2, UNK
     Route: 042
     Dates: start: 20061031, end: 20070405
  4. ENDOXAN [Suspect]
     Indication: BREAST CANCER
     Dosage: 600 MG/M2, UNK
     Route: 042
     Dates: start: 20061031, end: 20070201
  5. FARMARUBICINE [Suspect]
     Indication: BREAST CANCER
     Dosage: 100 MG/M2, UNK
     Route: 042
     Dates: start: 20061031, end: 20070201
  6. FLUOROURACIL [Concomitant]
     Indication: DRUG USE FOR UNKNOWN INDICATION
     Dates: start: 20061031

REACTIONS (1)
  - ALOPECIA [None]
